FAERS Safety Report 18084995 (Version 1)
Quarter: 2020Q3

REPORT INFORMATION
  Report Type: Spontaneous
  Country: US (occurrence: US)
  Receive Date: 20200728
  Receipt Date: 20200728
  Transmission Date: 20201103
  Serious: Yes (Hospitalization)
  Sender: FDA-Public Use
  Company Number: None

PATIENT
  Age: 88 Year
  Sex: Male
  Weight: 65.25 kg

DRUGS (8)
  1. PANTOPRAZOLE [Concomitant]
     Active Substance: PANTOPRAZOLE
  2. POTASSIUM CHLORIDE ER [Concomitant]
     Active Substance: POTASSIUM CHLORIDE
  3. LUPRON DEPOT [Concomitant]
     Active Substance: LEUPROLIDE ACETATE
  4. ABIRATERONE. [Suspect]
     Active Substance: ABIRATERONE ACETATE
     Indication: NEOPLASM MALIGNANT
     Route: 048
     Dates: start: 20190816, end: 20200728
  5. ALLOPURINOL. [Concomitant]
     Active Substance: ALLOPURINOL
  6. FUROSEMIDE. [Concomitant]
     Active Substance: FUROSEMIDE
  7. BICALUTAMIDE. [Concomitant]
     Active Substance: BICALUTAMIDE
  8. WARFARIN [Concomitant]
     Active Substance: WARFARIN

REACTIONS (2)
  - Hospitalisation [None]
  - Therapy interrupted [None]

NARRATIVE: CASE EVENT DATE: 20200728
